FAERS Safety Report 11847016 (Version 1)
Quarter: 2015Q4

REPORT INFORMATION
  Report Type: Spontaneous
  Country: US (occurrence: US)
  Receive Date: 20151217
  Receipt Date: 20151217
  Transmission Date: 20160305
  Serious: No
  Sender: FDA-Public Use
  Company Number: US-ROCHE-1534680

PATIENT
  Sex: Female

DRUGS (1)
  1. TAMIFLU [Suspect]
     Active Substance: OSELTAMIVIR PHOSPHATE
     Indication: INFLUENZA
     Dosage: TAKE FOR 5 DAYS
     Route: 048
     Dates: start: 20150116

REACTIONS (9)
  - Nervousness [Recovered/Resolved]
  - Insomnia [Recovered/Resolved]
  - Mood swings [Recovered/Resolved]
  - Vision blurred [Recovered/Resolved]
  - Peripheral swelling [Not Recovered/Not Resolved]
  - Rash [Recovering/Resolving]
  - Drug ineffective [Unknown]
  - Dizziness [Recovered/Resolved]
  - Fluid retention [Not Recovered/Not Resolved]
